FAERS Safety Report 9340748 (Version 1)
Quarter: 2013Q2

REPORT INFORMATION
  Report Type: Spontaneous
  Country: CN (occurrence: CN)
  Receive Date: 20130610
  Receipt Date: 20130610
  Transmission Date: 20140414
  Serious: Yes (Hospitalization)
  Sender: FDA-Public Use
  Company Number: CN-BAXTER-2013BAX020898

PATIENT
  Age: 15 Year
  Sex: Male

DRUGS (3)
  1. HOLOXAN [Suspect]
     Indication: CHEMOTHERAPY
     Route: 041
     Dates: start: 20120410, end: 20120414
  2. ADRIAMYCIN [Suspect]
     Indication: CHEMOTHERAPY
     Route: 065
     Dates: start: 20120410, end: 20120425
  3. CISPLATIN [Suspect]
     Indication: CHEMOTHERAPY
     Route: 065
     Dates: start: 20120410, end: 20120425

REACTIONS (2)
  - Bone marrow failure [Recovering/Resolving]
  - Hepatocellular injury [Recovering/Resolving]
